FAERS Safety Report 8303031-4 (Version None)
Quarter: 2012Q2

REPORT INFORMATION
  Report Type: 
  Country: None (occurrence: None)
  Receive Date: 20120421
  Receipt Date: 20120411
  Transmission Date: 20120825
  Serious: Yes (Other)
  Sender: FDA-Public Use
  Company Number: US-VERTEX PHARMACEUTICALS INC.-AE-2012-005170

PATIENT
  Sex: Female

DRUGS (5)
  1. PEG-INTRON [Concomitant]
     Dates: start: 20120201
  2. RIBAVIRIN [Concomitant]
     Indication: HEPATITIS C
     Dates: start: 20020101, end: 20020630
  3. PEG-INTRON [Concomitant]
     Indication: HEPATITIS C
     Dates: start: 20020101, end: 20020630
  4. RIBAVIRIN [Concomitant]
     Dates: start: 20120201
  5. INCIVEK [Suspect]
     Indication: HEPATITIS C
     Dates: start: 20120201

REACTIONS (7)
  - WEIGHT DECREASED [None]
  - WHITE BLOOD CELL COUNT DECREASED [None]
  - ALOPECIA [None]
  - BLOOD GLUCOSE DECREASED [None]
  - FATIGUE [None]
  - NAUSEA [None]
  - ANAEMIA [None]
